FAERS Safety Report 7683561-9 (Version None)
Quarter: 2011Q3

REPORT INFORMATION
  Report Type: 
  Country: None (occurrence: None)
  Receive Date: 20110815
  Receipt Date: 20110804
  Transmission Date: 20111222
  Serious: Yes (Other)
  Sender: FDA-Public Use
  Company Number: US-ASTRAZENECA-2011SE47121

PATIENT
  Age: 75 Year
  Sex: Female

DRUGS (4)
  1. CYMBALTA [Concomitant]
  2. PRILOSEC OTC [Suspect]
     Route: 048
  3. RESTASIS [Concomitant]
  4. NEXIUM [Suspect]
     Route: 048

REACTIONS (11)
  - DRUG DOSE OMISSION [None]
  - ABDOMINAL DISTENSION [None]
  - RETINAL DETACHMENT [None]
  - ABDOMINAL PAIN UPPER [None]
  - DYSPNOEA [None]
  - DRUG INEFFECTIVE [None]
  - RETINAL OPERATION [None]
  - DIPLOPIA [None]
  - ABDOMINAL DISCOMFORT [None]
  - GASTROOESOPHAGEAL REFLUX DISEASE [None]
  - DYSPHAGIA [None]
